FAERS Safety Report 6678444-7 (Version None)
Quarter: 2010Q2

REPORT INFORMATION
  Report Type: 
  Country: None (occurrence: None)
  Receive Date: 20100413
  Receipt Date: 20100401
  Transmission Date: 20101027
  Serious: No
  Sender: FDA-Public Use
  Company Number: US-BIOGENIDEC-2010BI011482

PATIENT
  Age: 50 Year
  Sex: Female

DRUGS (4)
  1. TYSABRI [Suspect]
     Indication: MULTIPLE SCLEROSIS
     Route: 042
     Dates: start: 20061013, end: 20070702
  2. TYSABRI [Suspect]
     Route: 042
     Dates: start: 20070920, end: 20080418
  3. TYSABRI [Suspect]
     Route: 042
     Dates: start: 20090903
  4. AVONEX [Concomitant]
     Indication: MULTIPLE SCLEROSIS
     Route: 030

REACTIONS (2)
  - NEUROGENIC BLADDER [None]
  - URINARY TRACT INFECTION [None]
